FAERS Safety Report 4492748-8 (Version None)
Quarter: 2004Q4

REPORT INFORMATION
  Report Type: 
  Country: None (occurrence: None)
  Receive Date: 20041102
  Receipt Date: 20041102
  Transmission Date: 20050328
  Serious: Yes (Congenital Anomaly)
  Sender: FDA-Public Use
  Company Number: None

PATIENT
  Age: 35 Year
  Sex: Male
  Weight: 95.2554 kg

DRUGS (1)
  1. CLEAR ZIT SHEFFIELD LABORATORIES [Suspect]
     Dosage: 1 DOSE FACE TOPICAL
     Route: 061
     Dates: start: 20041030, end: 20041031

REACTIONS (4)
  - APPLICATION SITE REACTION [None]
  - APPLICATION SITE SWELLING [None]
  - CHEMICAL BURN OF SKIN [None]
  - EYE SWELLING [None]
